FAERS Safety Report 6923856-7 (Version None)
Quarter: 2010Q3

REPORT INFORMATION
  Report Type: 
  Country: None (occurrence: None)
  Receive Date: 20100813
  Receipt Date: 20091106
  Transmission Date: 20110219
  Serious: Yes (Other)
  Sender: FDA-Public Use
  Company Number: US-BRISTOL-MYERS SQUIBB COMPANY-14846604

PATIENT
  Age: 30 Year
  Sex: Male

DRUGS (3)
  1. REYATAZ [Suspect]
     Dates: end: 20091105
  2. RITONAVIR [Suspect]
     Dates: end: 20091105
  3. TRUVADA [Suspect]
     Dates: end: 20091105

REACTIONS (1)
  - ARRHYTHMIA [None]
